FAERS Safety Report 19083296 (Version 1)
Quarter: 2021Q2

REPORT INFORMATION
  Report Type: Spontaneous
  Country: US (occurrence: US)
  Receive Date: 20210401
  Receipt Date: 20210401
  Transmission Date: 20210717
  Serious: Yes (Hospitalization)
  Sender: FDA-Public Use
  Company Number: None

PATIENT
  Sex: Female

DRUGS (3)
  1. NONE [Concomitant]
     Active Substance: UNSPECIFIED INGREDIENT
  2. CAPECITABINE. [Suspect]
     Active Substance: CAPECITABINE
     Indication: HEPATIC CANCER
     Dosage: ?          OTHER FREQUENCY:SEE B5;?
     Route: 048
     Dates: start: 20210302
  3. CAPECITABINE. [Suspect]
     Active Substance: CAPECITABINE
     Indication: HEPATIC CANCER
     Dosage: ?          OTHER FREQUENCY:SEE B5;?
     Route: 048
     Dates: start: 20210302

REACTIONS (2)
  - Hospitalisation [None]
  - Therapy interrupted [None]
